FAERS Safety Report 4456873-X (Version None)
Quarter: 2004Q3

REPORT INFORMATION
  Report Type: 
  Country: None (occurrence: None)
  Receive Date: 20040921
  Receipt Date: 20040908
  Transmission Date: 20050211
  Serious: Yes (Hospitalization)
  Sender: FDA-Public Use
  Company Number: 04P-062-0272742-00

PATIENT
  Age: 16 Year
  Sex: Female
  Weight: 49 kg

DRUGS (6)
  1. ISOPTIN [Suspect]
     Indication: SUICIDE ATTEMPT
     Dosage: ONCE, PER ORAL
     Route: 048
     Dates: start: 20040908, end: 20040908
  2. FERROUS SULFATE TAB [Suspect]
     Indication: SUICIDE ATTEMPT
     Dosage: 100 MG, 10 TABLETS, PER ORAL
     Route: 048
     Dates: start: 20040908, end: 20040908
  3. ARTISCHOKEN KAPSELN [Suspect]
     Indication: SUICIDE ATTEMPT
     Dosage: 20 CAPSULE, ONCE, PER ORAL
     Route: 048
     Dates: start: 20040908, end: 20040908
  4. IBUPROFEN [Suspect]
     Indication: SUICIDE ATTEMPT
     Dosage: 400 MG, 2 IN ONCE, PER ORAL
     Route: 048
     Dates: start: 20040908, end: 20040908
  5. THEARAFLU FORTE WITH PARACETAMOL [Suspect]
     Indication: SUICIDE ATTEMPT
     Dosage: 9 TABLET, ONCE, PER ORAL
     Route: 048
     Dates: start: 20040908, end: 20040908
  6. PROSTAGUTT [Suspect]
     Indication: SUICIDE ATTEMPT
     Dosage: 19 CAPSULE, ONCE PER ORAL
     Route: 048
     Dates: start: 20040908, end: 20040908

REACTIONS (4)
  - CRYING [None]
  - DIZZINESS [None]
  - MULTIPLE DRUG OVERDOSE INTENTIONAL [None]
  - SUICIDE ATTEMPT [None]
